FAERS Safety Report 23171361 (Version 2)
Quarter: 2024Q1

REPORT INFORMATION
  Report Type: Spontaneous
  Country: US (occurrence: US)
  Receive Date: 20231110
  Receipt Date: 20240211
  Transmission Date: 20240409
  Serious: No
  Sender: FDA-Public Use
  Company Number: US-SA-SAC20231106000331

PATIENT
  Age: 8 Year
  Sex: Male

DRUGS (1)
  1. DUPIXENT [Suspect]
     Active Substance: DUPILUMAB
     Indication: Dermatitis atopic
     Dosage: 300 MG, Q4W
     Route: 058
     Dates: start: 20230803

REACTIONS (7)
  - Administration site pain [Unknown]
  - Dry skin [Unknown]
  - Skin discolouration [Unknown]
  - Eczema [Unknown]
  - Skin fissures [Unknown]
  - Pruritus [Unknown]
  - Injection site pain [Unknown]
